FAERS Safety Report 20706145 (Version 1)
Quarter: 2022Q2

REPORT INFORMATION
  Report Type: Report from Study
  Country: US (occurrence: US)
  Receive Date: 20220413
  Receipt Date: 20220413
  Transmission Date: 20220721
  Serious: Yes (Other)
  Sender: FDA-Public Use
  Company Number: US-BRISTOL-MYERS SQUIBB COMPANY-2022-017903

PATIENT
  Age: 76 Year
  Sex: Male
  Weight: 75.2 kg

DRUGS (3)
  1. POMALYST [Suspect]
     Active Substance: POMALIDOMIDE
     Indication: Plasma cell myeloma
     Route: 048
     Dates: start: 20220317
  2. DEXAMETHASONE [Concomitant]
     Active Substance: DEXAMETHASONE
     Indication: Product used for unknown indication
     Route: 065
  3. VITAMIN B12 [Concomitant]
     Active Substance: CYANOCOBALAMIN
     Indication: Product used for unknown indication
     Route: 065

REACTIONS (7)
  - Rash [Unknown]
  - Hyperhidrosis [Unknown]
  - Constipation [Recovering/Resolving]
  - Decreased appetite [Unknown]
  - Dyspepsia [Unknown]
  - Chills [Unknown]
  - Injection site rash [Unknown]

NARRATIVE: CASE EVENT DATE: 20220101
